FAERS Safety Report 13449591 (Version 1)
Quarter: 2017Q2

REPORT INFORMATION
  Report Type: Spontaneous
  Country: GB (occurrence: GB)
  Receive Date: 20170417
  Receipt Date: 20170417
  Transmission Date: 20170830
  Serious: Yes (Other)
  Sender: FDA-Public Use
  Company Number: GB-MYLANLABS-2017M1022963

PATIENT

DRUGS (5)
  1. FRUCTO-OLIGOSACCHARIDE [Concomitant]
     Dosage: UNK
  2. MAGNESIUM L-THREONATE [Concomitant]
     Dosage: UNK
  3. PROBIOTIC [Concomitant]
     Active Substance: PROBIOTICS NOS
     Indication: DIVERTICULITIS
     Dosage: UNK
  4. ALPHA LIPOIC ACID [Concomitant]
     Active Substance: .ALPHA.-LIPOIC ACID
     Dosage: UNK
  5. CIPROFLOXACIN. [Suspect]
     Active Substance: CIPROFLOXACIN
     Indication: DIVERTICULITIS
     Dosage: TOOK FOR THREE DAYS ON THREE OCCASIONS WITH SEVERAL MONTHS GAP.
     Route: 048
     Dates: start: 2014, end: 2015

REACTIONS (9)
  - Skin burning sensation [Recovering/Resolving]
  - Muscle twitching [Unknown]
  - Tendon injury [Unknown]
  - Tendon pain [Recovering/Resolving]
  - Fatigue [Recovering/Resolving]
  - Malaise [Recovering/Resolving]
  - Back pain [Recovering/Resolving]
  - Inflammation [Recovering/Resolving]
  - Pain [Unknown]

NARRATIVE: CASE EVENT DATE: 2014
